FAERS Safety Report 4375954-2 (Version None)
Quarter: 2004Q2

REPORT INFORMATION
  Report Type: 
  Country: None (occurrence: None)
  Receive Date: 20040609
  Receipt Date: 20040609
  Transmission Date: 20050107
  Serious: Yes (Other)
  Sender: FDA-Public Use
  Company Number: None

PATIENT
  Sex: Female
  Weight: 20.4119 kg

DRUGS (2)
  1. RID MOUSSE [Suspect]
     Indication: LICE INFESTATION
     Dosage: SPRAYED MATTRESS
     Dates: start: 19971201, end: 19980101
  2. EUCALYPTUS OILD MIXED WITH WATER [Concomitant]

REACTIONS (3)
  - ASTHMA [None]
  - PALPITATIONS [None]
  - TREMOR [None]
